FAERS Safety Report 20984034 (Version 1)
Quarter: 2022Q2

REPORT INFORMATION
  Report Type: Spontaneous
  Country: US (occurrence: US)
  Receive Date: 20220621
  Receipt Date: 20220621
  Transmission Date: 20220720
  Serious: Yes (Other)
  Sender: FDA-Public Use
  Company Number: US-009507513-2206USA004833

PATIENT
  Sex: Male

DRUGS (3)
  1. TICE BCG [Suspect]
     Active Substance: BACILLUS CALMETTE-GUERIN SUBSTRAIN TICE LIVE ANTIGEN
     Indication: Bladder cancer
     Dosage: UNK UNK, QW
     Route: 043
  2. ELIQUIS [Concomitant]
     Active Substance: APIXABAN
  3. SIMVASTATIN [Concomitant]
     Active Substance: SIMVASTATIN

REACTIONS (2)
  - Bladder cancer recurrent [Not Recovered/Not Resolved]
  - Product availability issue [Unknown]
